FAERS Safety Report 16754144 (Version 1)
Quarter: 2019Q4

REPORT INFORMATION
  Report Type: Spontaneous
  Country: US (occurrence: US)
  Receive Date: 20190828
  Receipt Date: 20190828
  Transmission Date: 20200122
  Serious: Yes (Hospitalization)
  Sender: FDA-Public Use
  Company Number: None

PATIENT
  Age: 58 Year
  Sex: Female

DRUGS (7)
  1. CYCLOBENZAPR/ESTRACE [Concomitant]
  2. OMEPRAZOLE/ PREMARIN/TAMSULOSIN [Concomitant]
  3. LORATADINE/METHOTREXATE [Concomitant]
  4. ACYCLOVIR/BYSTOLIC [Concomitant]
  5. FOLIC ACID/LASIX [Concomitant]
  6. MORPHINE/MULTIVITAMIN [Concomitant]
  7. CIMZIA [Suspect]
     Active Substance: CERTOLIZUMAB PEGOL
     Indication: ANKYLOSING SPONDYLITIS
     Dosage: ?          OTHER FREQUENCY:EVERY 4 WEEKS;?
     Route: 058
     Dates: start: 20171020

REACTIONS (5)
  - Musculoskeletal stiffness [None]
  - Ulcer [None]
  - Fatigue [None]
  - Abdominal pain upper [None]
  - Ankylosing spondylitis [None]
